FAERS Safety Report 7035169-6 (Version None)
Quarter: 2010Q4

REPORT INFORMATION
  Report Type: 
  Country: None (occurrence: None)
  Receive Date: 20101008
  Receipt Date: 20101004
  Transmission Date: 20110411
  Serious: Yes (Death, Hospitalization, Other)
  Sender: FDA-Public Use
  Company Number: BR-BAYER-201018556LA

PATIENT
  Age: 65 Year
  Sex: Male
  Weight: 66 kg

DRUGS (6)
  1. NEXAVAR [Suspect]
     Indication: HEPATIC NEOPLASM MALIGNANT
     Dosage: CYCLE 1 800MG (2 TABS TWICE A DAY)
     Route: 048
     Dates: start: 20090101, end: 20100901
  2. PROPRANOLOL [Concomitant]
     Indication: PROPHYLAXIS
     Route: 048
     Dates: start: 20090101
  3. OMEPRAZOLE [Concomitant]
     Indication: PROPHYLAXIS
     Route: 048
     Dates: start: 20090101
  4. LACTULONA [Concomitant]
     Indication: CONSTIPATION PROPHYLAXIS
     Route: 048
     Dates: start: 20090101
  5. ESPIRONOLACTONA [Concomitant]
     Indication: DIURETIC THERAPY
     Route: 048
     Dates: start: 20090101
  6. FUROSEMIDA [Concomitant]
     Indication: DIURETIC THERAPY
     Route: 048
     Dates: start: 20090101

REACTIONS (2)
  - ABDOMINAL PAIN [None]
  - BACTERIAL SEPSIS [None]
